FAERS Safety Report 14660833 (Version 1)
Quarter: 2018Q1

REPORT INFORMATION
  Report Type: Spontaneous
  Country: US (occurrence: US)
  Receive Date: 20180320
  Receipt Date: 20180320
  Transmission Date: 20180509
  Serious: Yes (Other)
  Sender: FDA-Public Use
  Company Number: US-ASTRAZENECA-2018SE32621

PATIENT
  Age: 75 Year
  Sex: Male
  Weight: 61.2 kg

DRUGS (1)
  1. TUDORZA PRESSAIR [Suspect]
     Active Substance: ACLIDINIUM BROMIDE
     Indication: CHRONIC OBSTRUCTIVE PULMONARY DISEASE
     Route: 055

REACTIONS (7)
  - Lung neoplasm malignant [Recovered/Resolved]
  - Cancer in remission [Unknown]
  - Weight increased [Unknown]
  - Weight decreased [Recovered/Resolved]
  - Bladder cancer [Recovered/Resolved]
  - Intentional product misuse [Unknown]
  - Device malfunction [Unknown]

NARRATIVE: CASE EVENT DATE: 2016
